FAERS Safety Report 10259724 (Version 1)
Quarter: 2014Q2

REPORT INFORMATION
  Report Type: Spontaneous
  Country: US (occurrence: US)
  Receive Date: 20140625
  Receipt Date: 20140625
  Transmission Date: 20141212
  Serious: No
  Sender: FDA-Public Use
  Company Number: US-PFIZER INC-2014170316

PATIENT
  Age: 60 Year
  Sex: Female
  Weight: 52.61 kg

DRUGS (4)
  1. ZIPRASIDONE HCL [Suspect]
     Indication: DEPRESSION
     Dosage: 40 MG, 2X/DAY
     Dates: start: 2013
  2. SERTRALINE HCL [Suspect]
     Indication: ANXIETY
     Dosage: 200 MG, DAILY
     Dates: start: 2013
  3. SERTRALINE HCL [Suspect]
     Indication: DEPRESSION
  4. DULOXETINE [Concomitant]
     Dosage: UNK

REACTIONS (4)
  - Tremor [Unknown]
  - Hypersomnia [Unknown]
  - Dysphoria [Unknown]
  - White blood cell count decreased [Unknown]
